FAERS Safety Report 8318156-7 (Version None)
Quarter: 2012Q2

REPORT INFORMATION
  Report Type: 
  Country: None (occurrence: None)
  Receive Date: 20120427
  Receipt Date: 20120423
  Transmission Date: 20120825
  Serious: Yes (Life-Threatening)
  Sender: FDA-Public Use
  Company Number: FR-ASTRAZENECA-2012SE26649

PATIENT
  Age: 74 Year
  Sex: Male

DRUGS (8)
  1. SUFENTANIL CITRATE [Suspect]
     Route: 042
     Dates: start: 20120327, end: 20120327
  2. NAROPIN [Suspect]
     Route: 008
     Dates: start: 20120327, end: 20120327
  3. ROCURONIUM BROMIDE [Suspect]
     Route: 042
     Dates: start: 20120327, end: 20120327
  4. ACETAMINOPHEN [Suspect]
     Route: 042
     Dates: start: 20120327, end: 20120327
  5. DESFLURANE [Suspect]
     Route: 055
     Dates: start: 20120327, end: 20120327
  6. KETAMINE HCL [Suspect]
     Route: 042
     Dates: start: 20120327, end: 20120327
  7. PROCORALAN [Suspect]
     Indication: TACHYCARDIA
     Route: 048
     Dates: start: 20120327, end: 20120327
  8. PROPOFOL [Suspect]
     Route: 042
     Dates: start: 20120327, end: 20120327

REACTIONS (2)
  - SINOATRIAL BLOCK [None]
  - CARDIAC ARREST [None]
